FAERS Safety Report 8999225 (Version 3)
Quarter: 2013Q2

REPORT INFORMATION
  Report Type: Spontaneous
  Country: US (occurrence: US)
  Receive Date: 20130103
  Receipt Date: 20130520
  Transmission Date: 20140414
  Serious: Yes (Other)
  Sender: FDA-Public Use
  Company Number: US-BRISTOL-MYERS SQUIBB COMPANY-17244658

PATIENT
  Age: 77 Year
  Sex: Female
  Weight: 57 kg

DRUGS (20)
  1. PARAPLATIN [Suspect]
     Indication: OVARIAN CANCER
     Dosage: TOTAL:400MG UNIT:5 AUC IN MG
     Route: 042
     Dates: start: 2012
  2. TAXOL [Suspect]
     Indication: OVARIAN CANCER
     Dosage: TOTAL:309MG
     Route: 042
     Dates: start: 2012
  3. SINEMET [Interacting]
     Indication: PARKINSON^S DISEASE
     Dosage: 1DF:(25-100 AND 50-200) UNITS NOS.
  4. MIRAPEX [Interacting]
     Indication: PARKINSON^S DISEASE
  5. NEULASTA [Suspect]
     Indication: OVARIAN CANCER
     Dosage: INJ TOTAL:0.25MG
     Route: 058
     Dates: start: 2012
  6. DEXAMETHASONE [Concomitant]
     Dosage: TOTAL:20MG
     Route: 042
  7. DIPHENHYDRAMINE [Concomitant]
     Dosage: TOTAL:50MG ALSO 25MG
     Route: 042
  8. FAMOTIDINE [Concomitant]
     Dosage: TOTAL:20MG
     Route: 042
  9. PALONOSETRON [Concomitant]
     Dosage: TOTAL:0.25MG
     Route: 042
  10. HYDROCORTISONE [Concomitant]
     Dosage: TOTAL:100MG
     Route: 042
  11. MAXZIDE [Concomitant]
  12. SYNTHROID [Concomitant]
     Route: 048
  13. ALDACTONE [Concomitant]
     Route: 048
  14. COUMADIN TABS 3 MG [Concomitant]
     Route: 048
  15. PRAVACHOL TABS 20 MG [Concomitant]
     Route: 048
  16. SINEMET CR TABS 50MG/200MG [Concomitant]
     Route: 048
  17. KLONOPIN [Concomitant]
     Route: 048
  18. VITAMIN D [Concomitant]
     Dosage: 1000 UNITS
     Route: 048
  19. PYRIDOXINE [Concomitant]
     Route: 048
  20. VITAMIN B12 [Concomitant]

REACTIONS (4)
  - Parkinson^s disease [Not Recovered/Not Resolved]
  - Drug interaction [Unknown]
  - Peripheral coldness [Not Recovered/Not Resolved]
  - Feeling abnormal [Unknown]
